FAERS Safety Report 15655663 (Version 3)
Quarter: 2019Q1

REPORT INFORMATION
  Report Type: Report from Study
  Country: US (occurrence: US)
  Receive Date: 20181126
  Receipt Date: 20190103
  Transmission Date: 20190417
  Serious: Yes (Hospitalization)
  Sender: FDA-Public Use
  Company Number: US-ROCHE-2218056

PATIENT
  Age: 73 Year
  Sex: Male
  Weight: 65.5 kg

DRUGS (46)
  1. VENETOCLAX. [Suspect]
     Active Substance: VENETOCLAX
     Indication: RICHTER^S SYNDROME
     Route: 065
     Dates: start: 201805
  2. VENETOCLAX. [Suspect]
     Active Substance: VENETOCLAX
     Route: 048
     Dates: start: 20181105
  3. ETOPOSIDE. [Suspect]
     Active Substance: ETOPOSIDE
     Indication: RICHTER^S SYNDROME
     Route: 042
     Dates: start: 20181105
  4. LIDODERM [Concomitant]
     Active Substance: LIDOCAINE
     Dosage: PATCH
     Route: 062
     Dates: start: 20181217
  5. CALCIUM GLUCONATE. [Concomitant]
     Active Substance: CALCIUM GLUCONATE
  6. PREDNISONE. [Suspect]
     Active Substance: PREDNISONE
     Indication: RICHTER^S SYNDROME
     Route: 048
     Dates: start: 20181105
  7. CYCLOPHOSPHAMIDE. [Suspect]
     Active Substance: CYCLOPHOSPHAMIDE
     Indication: RICHTER^S SYNDROME
     Route: 042
     Dates: start: 20181110
  8. SYNTHROID [Concomitant]
     Active Substance: LEVOTHYROXINE SODIUM
     Route: 048
  9. VANTIN (CEFPODOXIME) [Concomitant]
     Route: 048
     Dates: start: 20181217
  10. DRISDOL [Concomitant]
     Active Substance: ERGOCALCIFEROL
     Dosage: 50000 UNITS
     Route: 048
     Dates: start: 20181110
  11. LOPRESSOR [Concomitant]
     Active Substance: METOPROLOL TARTRATE
     Indication: HYPERTENSION
     Route: 048
     Dates: start: 20181126
  12. RITUXIMAB. [Suspect]
     Active Substance: RITUXIMAB
     Indication: RICHTER^S SYNDROME
     Route: 042
     Dates: start: 20181105
  13. LASIX [Concomitant]
     Active Substance: FUROSEMIDE
  14. IMODIUM [Concomitant]
     Active Substance: LOPERAMIDE HYDROCHLORIDE
  15. ZOFRAN [Concomitant]
     Active Substance: ONDANSETRON HYDROCHLORIDE
     Indication: VOMITING
  16. TRAMADOL. [Concomitant]
     Active Substance: TRAMADOL
  17. VALTREX [Concomitant]
     Active Substance: VALACYCLOVIR HYDROCHLORIDE
     Route: 048
     Dates: start: 20181017
  18. NORMAL SALINE [Concomitant]
     Active Substance: SODIUM CHLORIDE
     Route: 065
     Dates: start: 20181017
  19. SIMETHICONE (DIMETHICONE) [Concomitant]
     Active Substance: DIMETHICONE
  20. VENETOCLAX. [Suspect]
     Active Substance: VENETOCLAX
     Route: 048
     Dates: start: 20180905
  21. CYCLOPHOSPHAMIDE. [Suspect]
     Active Substance: CYCLOPHOSPHAMIDE
     Route: 042
     Dates: start: 20181217
  22. ZYLOPRIM [Concomitant]
     Active Substance: ALLOPURINOL
     Indication: PREMEDICATION
     Dosage: 3 DAY BEFORE STARTING VENETOCLAX
     Route: 048
     Dates: start: 20181207
  23. ULTRAM [Concomitant]
     Active Substance: TRAMADOL HYDROCHLORIDE
  24. RITUXIMAB. [Suspect]
     Active Substance: RITUXIMAB
     Route: 042
     Dates: start: 20181213
  25. ETOPOSIDE. [Suspect]
     Active Substance: ETOPOSIDE
     Dosage: THROUGH 16/DEC/2018
     Route: 042
     Dates: start: 20181213
  26. PREDNISONE. [Suspect]
     Active Substance: PREDNISONE
     Dosage: THROUGH 16/DEC/2018
     Route: 048
     Dates: start: 20181213
  27. REMERON [Concomitant]
     Active Substance: MIRTAZAPINE
     Dosage: AT BEDTIME
     Route: 048
     Dates: start: 20181217
  28. ONCOVIN [Suspect]
     Active Substance: VINCRISTINE SULFATE
     Indication: RICHTER^S SYNDROME
     Route: 042
     Dates: start: 20181105
  29. ONCOVIN [Suspect]
     Active Substance: VINCRISTINE SULFATE
     Dosage: THROUGH 16/DEC/2018
     Route: 042
     Dates: start: 20181213
  30. PRILOSEC [Concomitant]
     Active Substance: OMEPRAZOLE MAGNESIUM
     Route: 048
     Dates: start: 20180317
  31. ZOCOR [Concomitant]
     Active Substance: SIMVASTATIN
     Route: 048
     Dates: start: 20181017
  32. FLEXERIL [Concomitant]
     Active Substance: CYCLOBENZAPRINE HYDROCHLORIDE
     Indication: MUSCLE SPASMS
     Dosage: AS NEEDED
     Route: 048
     Dates: start: 20181217
  33. VENETOCLAX. [Suspect]
     Active Substance: VENETOCLAX
     Dosage: 1 TABLET (100 MG) BY MOUTH ON THE THIRD DAY, THEN 2 TABLETS (200 MG)ON THE FOURTH DAY, AND THEN 4 TA
     Route: 048
     Dates: start: 20181207
  34. DOXORUBICIN [Suspect]
     Active Substance: DOXORUBICIN
     Indication: RICHTER^S SYNDROME
     Route: 042
     Dates: start: 20181105
  35. LOVENOX [Concomitant]
     Active Substance: ENOXAPARIN SODIUM
  36. MIRALAX [Concomitant]
     Active Substance: POLYETHYLENE GLYCOL 3350
  37. BACTRIM [Concomitant]
     Active Substance: SULFAMETHOXAZOLE\TRIMETHOPRIM
     Dosage: 800/160 MG?DAILY ON MONDAY, WEDNESDAY AND FRIDAY
     Route: 050
     Dates: start: 20181017
  38. VALTREX [Concomitant]
     Active Substance: VALACYCLOVIR HYDROCHLORIDE
     Route: 048
     Dates: start: 20181223
  39. TESSALON [Concomitant]
     Active Substance: BENZONATATE
     Indication: COUGH
     Dosage: AS NEEDED
     Route: 048
     Dates: start: 20181119
  40. ATIVAN [Concomitant]
     Active Substance: LORAZEPAM
  41. DOXORUBICIN [Suspect]
     Active Substance: DOXORUBICIN
     Dosage: THROUGH 16/DEC/2018
     Route: 042
     Dates: start: 20181213
  42. ZOFRAN [Concomitant]
     Active Substance: ONDANSETRON HYDROCHLORIDE
     Indication: NAUSEA
     Route: 048
  43. ROBITUSSIN DM [Concomitant]
     Active Substance: DEXTROMETHORPHAN HYDROBROMIDE\GUAIFENESIN
     Indication: COUGH
     Dosage: AS NEEDED
     Route: 048
     Dates: start: 20181119
  44. MICRO K [Concomitant]
     Route: 048
     Dates: start: 20181218
  45. DUONEB [Concomitant]
     Active Substance: ALBUTEROL SULFATE\IPRATROPIUM BROMIDE
  46. SENOKOT-S [Concomitant]
     Active Substance: DOCUSATE SODIUM\SENNOSIDES

REACTIONS (5)
  - Abdominal distension [Unknown]
  - Febrile neutropenia [Unknown]
  - Pneumonia [Unknown]
  - Hypotension [Unknown]
  - Sepsis [Recovering/Resolving]

NARRATIVE: CASE EVENT DATE: 20181116
